FAERS Safety Report 10208882 (Version 4)
Quarter: 2014Q2

REPORT INFORMATION
  Report Type: Report from Study
  Country: DE (occurrence: DE)
  Receive Date: 20140530
  Receipt Date: 20140616
  Transmission Date: 20141212
  Serious: Yes (Death, Hospitalization)
  Sender: FDA-Public Use
  Company Number: DE-OTSUKA-US-2014-10087

PATIENT
  Age: 48 Year
  Sex: Male

DRUGS (5)
  1. OPC-41061 [Suspect]
     Indication: CONGENITAL CYSTIC KIDNEY DISEASE
     Dosage: UNK
     Route: 048
     Dates: start: 20110405, end: 20131124
  2. RAMIPRIL [Concomitant]
     Indication: HYPERTENSION
     Dosage: 10 MG MILLIGRAM(S), UNK
     Route: 048
     Dates: start: 200608
  3. METOPROLOL [Concomitant]
     Indication: HYPERTENSION
     Dosage: 50 MG MILLIGRAM(S), BID
     Route: 048
     Dates: start: 200209
  4. ALLOPURINOL [Concomitant]
     Indication: HYPERURICAEMIA
     Dosage: 150 MG MILLIGRAM(S), SINGLE
     Route: 048
     Dates: start: 20121219
  5. SIMVASTATIN [Concomitant]
     Indication: HYPERCHOLESTEROLAEMIA
     Dosage: 20 MG MILLIGRAM(S), SINGLE
     Route: 048
     Dates: start: 20131105

REACTIONS (1)
  - Pancreatitis necrotising [Fatal]
